FAERS Safety Report 5101528-1 (Version None)
Quarter: 2006Q3

REPORT INFORMATION
  Report Type: 
  Country: None (occurrence: None)
  Receive Date: 20060906
  Receipt Date: 20060825
  Transmission Date: 20061208
  Serious: Yes (Other)
  Sender: FDA-Public Use
  Company Number: 2006104350

PATIENT
  Age: 61 Year
  Sex: Female

DRUGS (1)
  1. XALATAN [Suspect]
     Indication: GLAUCOMA
     Dosage: 1 DROP (1 IN 1 D), INTRAOCULAR
     Dates: start: 20010101

REACTIONS (5)
  - DRUG INEFFECTIVE [None]
  - EYE OPERATION [None]
  - GAMMA-GLUTAMYLTRANSFERASE INCREASED [None]
  - INTRAOCULAR PRESSURE INCREASED [None]
  - VISION BLURRED [None]
